FAERS Safety Report 7571427-4 (Version None)
Quarter: 2011Q2

REPORT INFORMATION
  Report Type: 
  Country: None (occurrence: None)
  Receive Date: 20110623
  Receipt Date: 20110623
  Transmission Date: 20111010
  Serious: No
  Sender: FDA-Public Use
  Company Number: None

PATIENT
  Age: 75 Year
  Sex: Male
  Weight: 99.7913 kg

DRUGS (2)
  1. LIPITOR [Suspect]
     Indication: BLOOD CHOLESTEROL
     Dosage: 20-MG 1 DAILY PO
     Route: 048
     Dates: start: 20050721, end: 20060721
  2. SIMVASTATIN [Suspect]
     Indication: BLOOD CHOLESTEROL
     Dosage: 20-MG 1 DAILY PO
     Route: 048

REACTIONS (6)
  - MYALGIA [None]
  - GAIT DISTURBANCE [None]
  - ACTIVITIES OF DAILY LIVING IMPAIRED [None]
  - MUSCULAR WEAKNESS [None]
  - PAIN IN EXTREMITY [None]
  - BALANCE DISORDER [None]
